FAERS Safety Report 13732979 (Version 1)
Quarter: 2017Q3

REPORT INFORMATION
  Report Type: Spontaneous
  Country: US (occurrence: US)
  Receive Date: 20170707
  Receipt Date: 20170707
  Transmission Date: 20171127
  Serious: No
  Sender: FDA-Public Use
  Company Number: US-ROCHE-1449536

PATIENT
  Age: 45 Year
  Sex: Male
  Weight: 43 kg

DRUGS (1)
  1. CYTOVENE IV [Suspect]
     Active Substance: GANCICLOVIR SODIUM
     Indication: MENINGITIS
     Dosage: Q12 - 1 DOSE GIVEN
     Route: 042
     Dates: start: 201308, end: 201308

REACTIONS (1)
  - Extravasation [Unknown]
